FAERS Safety Report 23833409 (Version 1)
Quarter: 2024Q2

REPORT INFORMATION
  Report Type: Spontaneous
  Country: US (occurrence: US)
  Receive Date: 20240508
  Receipt Date: 20240508
  Transmission Date: 20240716
  Serious: No
  Sender: FDA-Public Use
  Company Number: US-009507513-2404USA007085

PATIENT
  Sex: Female
  Weight: 126.07 kg

DRUGS (10)
  1. KEYTRUDA [Suspect]
     Active Substance: PEMBROLIZUMAB
     Dosage: UNK
  2. LENVATINIB MESYLATE [Suspect]
     Active Substance: LENVATINIB MESYLATE
     Indication: Renal cancer
     Dosage: 18MG (1-10MG/2-4MG)5 DAY PK-COMM
     Route: 048
     Dates: start: 20240120
  3. ALBUTEROL [Concomitant]
     Active Substance: ALBUTEROL
  4. ASPIRIN [Concomitant]
     Active Substance: ASPIRIN
  5. ATIVAN [Concomitant]
     Active Substance: LORAZEPAM
  6. HYDROCHLOROTHIAZIDE [Concomitant]
     Active Substance: HYDROCHLOROTHIAZIDE
  7. HYDROCODONE [Concomitant]
     Active Substance: HYDROCODONE
  8. LOSARTAN [Concomitant]
     Active Substance: LOSARTAN
  9. METHOCARBAMOL [Concomitant]
     Active Substance: METHOCARBAMOL
  10. VRAYLAR [Concomitant]
     Active Substance: CARIPRAZINE

REACTIONS (7)
  - Pain of skin [Not Recovered/Not Resolved]
  - Neck pain [Not Recovered/Not Resolved]
  - Facial pain [Not Recovered/Not Resolved]
  - Dysphagia [Not Recovered/Not Resolved]
  - Stomatitis [Not Recovered/Not Resolved]
  - Arthralgia [Not Recovered/Not Resolved]
  - Arthritis [Not Recovered/Not Resolved]
